FAERS Safety Report 8964425 (Version 1)
Quarter: 2012Q4

REPORT INFORMATION
  Report Type: 
  Country: DE (occurrence: DE)
  Receive Date: 20121213
  Receipt Date: 20121213
  Transmission Date: 20130627
  Serious: Yes (Life-Threatening, Other)
  Sender: FDA-Public Use
  Company Number: DE-ROCHE-1081153

PATIENT
  Age: 83 Year
  Sex: Female

DRUGS (2)
  1. RITUXIMAB [Suspect]
     Indication: PROLYMPHOCYTIC LEUKAEMIA
     Dosage: cycle 6, Dose: 6 seperate doses
     Route: 065
  2. BENDAMUSTINE [Concomitant]
     Indication: PROLYMPHOCYTIC LEUKAEMIA
     Dosage: cycle 6, Dose: 6 seperate dose.
     Route: 065

REACTIONS (2)
  - Hepatitis B [Unknown]
  - Hepatic failure [Unknown]
